FAERS Safety Report 6699999-2 (Version None)
Quarter: 2010Q2

REPORT INFORMATION
  Report Type: 
  Country: None (occurrence: None)
  Receive Date: 20100428
  Receipt Date: 20100423
  Transmission Date: 20101027
  Serious: Yes (Death, Other)
  Sender: FDA-Public Use
  Company Number: PHHY2010JP12245

PATIENT
  Age: 62 Year
  Sex: Male

DRUGS (2)
  1. ZOMETA [Suspect]
     Indication: METASTASES TO BONE
     Dosage: 4 MG (INTERVAL NOT PROVIDED)
     Route: 042
     Dates: start: 20070206, end: 20070711
  2. PREDONINE [Concomitant]
     Dosage: 10MG/DAY
     Dates: start: 20051101

REACTIONS (10)
  - BACTERIAL INFECTION [None]
  - BONE OPERATION [None]
  - GINGIVAL PAIN [None]
  - GINGIVAL SWELLING [None]
  - OPEN WOUND [None]
  - OSTEONECROSIS [None]
  - PROSTATE CANCER [None]
  - SECONDARY SEQUESTRUM [None]
  - SEQUESTRECTOMY [None]
  - TOOTHACHE [None]
